FAERS Safety Report 14172334 (Version 1)
Quarter: 2017Q4

REPORT INFORMATION
  Report Type: Spontaneous
  Country: US (occurrence: None)
  Receive Date: 20171108
  Receipt Date: 20171108
  Transmission Date: 20180321
  Serious: Yes (Life-Threatening, Other)
  Sender: FDA-Public Use
  Company Number: None

PATIENT
  Age: 35 Year
  Sex: Male
  Weight: 87.54 kg

DRUGS (2)
  1. BUPRENORPHINE HYDROCHLORIDE AND NALOXONE HYDROCHLORIDE [Suspect]
     Active Substance: BUPRENORPHINE HYDROCHLORIDE\NALOXONE HYDROCHLORIDE
     Indication: SUBSTANCE ABUSE
     Route: 060
     Dates: start: 20171101, end: 20171107
  2. BUNAVIL [Concomitant]

REACTIONS (3)
  - Visual impairment [None]
  - Migraine [None]
  - Loss of personal independence in daily activities [None]

NARRATIVE: CASE EVENT DATE: 20171101
